FAERS Safety Report 7260623-1 (Version None)
Quarter: 2011Q1

REPORT INFORMATION
  Report Type: 
  Country: None (occurrence: None)
  Receive Date: 20110130
  Receipt Date: 20101110
  Transmission Date: 20110831
  Serious: No
  Sender: FDA-Public Use
  Company Number: US-ABBOTT-10P-163-0684798-00

PATIENT
  Age: 57 Year
  Sex: Female

DRUGS (5)
  1. ALEVE [Concomitant]
     Indication: PAIN
  2. SINGULAIR [Concomitant]
     Indication: SINUS DISORDER
  3. FOLIC ACID [Concomitant]
     Indication: PRODUCT USED FOR UNKNOWN INDICATION
  4. METHOTREXATE [Concomitant]
     Indication: PRODUCT USED FOR UNKNOWN INDICATION
     Dosage: ON THURSDAYS
  5. HUMIRA [Suspect]
     Indication: RHEUMATOID ARTHRITIS
     Dates: start: 20100701

REACTIONS (1)
  - MUSCLE STRAIN [None]
